FAERS Safety Report 8590364-X (Version None)
Quarter: 2012Q3

REPORT INFORMATION
  Report Type: 
  Country: None (occurrence: None)
  Receive Date: 20120813
  Receipt Date: 20120807
  Transmission Date: 20120928
  Serious: No
  Sender: FDA-Public Use
  Company Number: US-PFIZER INC-2012182842

PATIENT
  Age: 37 Year
  Sex: Male

DRUGS (1)
  1. BENEFIX [Suspect]
     Dosage: UNK

REACTIONS (1)
  - BRONCHITIS [None]
